FAERS Safety Report 11076025 (Version 2)
Quarter: 2015Q2

REPORT INFORMATION
  Report Type: Spontaneous
  Country: CH (occurrence: SE)
  Receive Date: 20150429
  Receipt Date: 20150511
  Transmission Date: 20150821
  Serious: Yes (Hospitalization)
  Sender: FDA-Public Use
  Company Number: CH-LPDUSPRD-20150212

PATIENT
  Age: 19 Year
  Sex: Female

DRUGS (1)
  1. FERINJECT [Suspect]
     Active Substance: FERRIC CARBOXYMALTOSE
     Dosage: 1000 MG (1 IN 1 TOTAL0
     Route: 041
     Dates: start: 20141215, end: 20141215

REACTIONS (5)
  - Hypotension [Unknown]
  - Malaise [Recovered/Resolved]
  - Abnormal sensation in eye [Unknown]
  - Chest discomfort [Unknown]
  - Nausea [Unknown]

NARRATIVE: CASE EVENT DATE: 20141215
